FAERS Safety Report 6422274-8 (Version None)
Quarter: 2009Q4

REPORT INFORMATION
  Report Type: 
  Country: None (occurrence: None)
  Receive Date: 20091030
  Receipt Date: 20091022
  Transmission Date: 20100525
  Serious: Yes (Other)
  Sender: FDA-Public Use
  Company Number: SE-JNJCH-2009027950

PATIENT
  Age: 77 Year
  Sex: Female

DRUGS (6)
  1. COOL MINT LISTERINE MOUTHWASH [Suspect]
     Indication: DENTAL DISORDER PROPHYLAXIS
     Dosage: TEXT:1 BOTTLE; UNSPECIFIED FREQUENCY
     Route: 048
     Dates: start: 20090101, end: 20090101
  2. LISTERINE TOTAL CARE [Suspect]
     Indication: DENTAL DISORDER PROPHYLAXIS
     Dosage: TEXT:1.5 BOTTLES; UNSPECIFIED FREQUENCY
     Route: 048
     Dates: start: 20090101, end: 20090101
  3. TROMBYL [Concomitant]
     Indication: THROMBOSIS PROPHYLAXIS
     Dosage: TEXT:UNSPECIFIED
     Route: 048
  4. SIMVASTATIN [Concomitant]
     Indication: HYPERCHOLESTEROLAEMIA
     Dosage: TEXT:UNSPECIFIED
     Route: 048
  5. FELODIPINE [Concomitant]
     Indication: HYPERTENSION
     Dosage: TEXT:UNSPECIFIED
     Route: 048
  6. DRUG, UNSPECIFIED [Concomitant]
     Indication: DYSPEPSIA
     Dosage: TEXT:UNSPECIFIED - OCCASIONALLY
     Route: 065

REACTIONS (1)
  - AGEUSIA [None]
